FAERS Safety Report 12509802 (Version 1)
Quarter: 2016Q2

REPORT INFORMATION
  Report Type: Spontaneous
  Country: US (occurrence: US)
  Receive Date: 20160629
  Receipt Date: 20160629
  Transmission Date: 20160815
  Serious: Yes (Other)
  Sender: FDA-Public Use
  Company Number: US-TEVA-671034USA

PATIENT
  Age: 49 Year
  Sex: Female

DRUGS (2)
  1. ZECUITY [Suspect]
     Active Substance: SUMATRIPTAN SUCCINATE
     Route: 062
     Dates: start: 20160614, end: 20160614
  2. ZECUITY [Suspect]
     Active Substance: SUMATRIPTAN SUCCINATE
     Route: 062
     Dates: start: 20160613, end: 20160613

REACTIONS (9)
  - Incorrect drug administration duration [Unknown]
  - Application site urticaria [Unknown]
  - Application site inflammation [Unknown]
  - Sunburn [Unknown]
  - Application site pain [Unknown]
  - Application site erythema [Unknown]
  - Application site discomfort [Unknown]
  - Application site burn [Unknown]
  - Application site paraesthesia [Unknown]

NARRATIVE: CASE EVENT DATE: 20160613
